FAERS Safety Report 6622805-9 (Version None)
Quarter: 2010Q1

REPORT INFORMATION
  Report Type: 
  Country: None (occurrence: None)
  Receive Date: 20100310
  Receipt Date: 20100301
  Transmission Date: 20100710
  Serious: Yes (Other)
  Sender: FDA-Public Use
  Company Number: US-ASTRAZENECA-2009SE21835

PATIENT
  Age: 987 Month
  Sex: Female
  Weight: 63.5 kg

DRUGS (8)
  1. ARIMIDEX [Suspect]
     Indication: BREAST CANCER
     Route: 048
     Dates: start: 20050112, end: 20091009
  2. CALCARB 600/D [Concomitant]
     Indication: OSTEOPENIA
     Route: 048
  3. FOSAMAX [Concomitant]
     Indication: OSTEOPENIA
     Route: 048
  4. LISINOPRIL AND HYDROCHLOROTHIAZIDE [Concomitant]
     Indication: HYPERTENSION
     Route: 048
     Dates: start: 20050406
  5. MULTI-VITAMIN [Concomitant]
     Route: 048
     Dates: start: 20050112
  6. SYNTHROID [Concomitant]
     Indication: HYPOTHYROIDISM
     Route: 048
  7. LIPITOR [Concomitant]
     Indication: HYPERLIPIDAEMIA
     Dates: start: 20040101
  8. SIMVISTATIN ASA [Concomitant]
     Indication: HYPERLIPIDAEMIA
     Dosage: 81 MG ONCE  DAILY
     Route: 048
     Dates: start: 20080430

REACTIONS (6)
  - BONE DENSITY DECREASED [None]
  - COMPRESSION FRACTURE [None]
  - HIP ARTHROPLASTY [None]
  - HIP FRACTURE [None]
  - OSTEOARTHRITIS [None]
  - OSTEONECROSIS [None]
